FAERS Safety Report 12800892 (Version 3)
Quarter: 2016Q4

REPORT INFORMATION
  Report Type: Spontaneous
  Country: TR (occurrence: TR)
  Receive Date: 20161002
  Receipt Date: 20161017
  Transmission Date: 20170207
  Serious: Yes (Life-Threatening)
  Sender: FDA-Public Use
  Company Number: PHHY2016TR135136

PATIENT
  Sex: Female

DRUGS (1)
  1. FINGYA [Suspect]
     Active Substance: FINGOLIMOD
     Indication: RELAPSING-REMITTING MULTIPLE SCLEROSIS
     Dosage: 1 DF, QD
     Route: 048
     Dates: start: 201501, end: 201609

REACTIONS (2)
  - Ovarian cancer [Not Recovered/Not Resolved]
  - Abdominal pain [Unknown]
